FAERS Safety Report 5044769-4 (Version None)
Quarter: 2006Q3

REPORT INFORMATION
  Report Type: 
  Country: None (occurrence: None)
  Receive Date: 20060707
  Receipt Date: 20060625
  Transmission Date: 20061208
  Serious: Yes (Hospitalization, Other)
  Sender: FDA-Public Use
  Company Number: US-AMGEN-STX184322

PATIENT
  Sex: Female

DRUGS (3)
  1. ENBREL [Suspect]
     Indication: PSORIATIC ARTHROPATHY
     Route: 058
     Dates: start: 20040101
  2. CYCLOSPORINE [Concomitant]
     Route: 048
     Dates: start: 20060601
  3. IMURAN [Concomitant]
     Route: 048

REACTIONS (5)
  - DIZZINESS [None]
  - INNER EAR DISORDER [None]
  - NERVOUSNESS [None]
  - NEUROLOGICAL SYMPTOM [None]
  - SYNOVIAL CYST [None]
